FAERS Safety Report 18268811 (Version 4)
Quarter: 2021Q1

REPORT INFORMATION
  Report Type: Spontaneous
  Country: US (occurrence: US)
  Receive Date: 20200915
  Receipt Date: 20210125
  Transmission Date: 20210419
  Serious: No
  Sender: FDA-Public Use
  Company Number: US-PFIZER INC-2020353795

PATIENT
  Age: 52 Year
  Sex: Female

DRUGS (1)
  1. XELJANZ XR [Suspect]
     Active Substance: TOFACITINIB CITRATE
     Dosage: 11 MG
     Dates: start: 20200820

REACTIONS (5)
  - Condition aggravated [Unknown]
  - Therapeutic response unexpected [Unknown]
  - Pain [Unknown]
  - Liver function test increased [Unknown]
  - Therapeutic product effect incomplete [Unknown]
